FAERS Safety Report 9509929 (Version 2)
Quarter: 2013Q3

REPORT INFORMATION
  Report Type: Spontaneous
  Country: US (occurrence: US)
  Receive Date: 20130909
  Receipt Date: 20130909
  Transmission Date: 20140515
  Serious: No
  Sender: FDA-Public Use
  Company Number: US-BRISTOL-MYERS SQUIBB COMPANY-18800318

PATIENT
  Age: 60 Year
  Sex: Male

DRUGS (1)
  1. ABILIFY [Suspect]

REACTIONS (5)
  - Insomnia [Unknown]
  - Dyskinesia [Unknown]
  - Restless legs syndrome [Unknown]
  - Pain in extremity [Unknown]
  - Cartilage injury [Unknown]
